FAERS Safety Report 10249497 (Version 1)
Quarter: 2014Q2

REPORT INFORMATION
  Report Type: Spontaneous
  Country: FR (occurrence: FR)
  Receive Date: 20140620
  Receipt Date: 20140620
  Transmission Date: 20141212
  Serious: Yes (Other)
  Sender: FDA-Public Use
  Company Number: FR-PERRIGO-14FR005939

PATIENT
  Age: 17 Year
  Sex: Female

DRUGS (3)
  1. IBUPROFEN 200 MG 604 [Suspect]
     Indication: CHONDROPATHY
     Dosage: 400 MG, QID
     Route: 048
     Dates: start: 201302
  2. IBUPROFEN 200 MG 604 [Suspect]
     Dosage: 400 MG, 8 TIMES DIALY
     Route: 048
     Dates: start: 201304
  3. IBUPROFEN 200 MG 604 [Suspect]
     Dosage: 400 MG, UP TO 5 TIMES DAILY
     Route: 048
     Dates: start: 201306

REACTIONS (5)
  - Drug dependence [Unknown]
  - Tremor [Unknown]
  - Anxiety [Unknown]
  - Irritability [Unknown]
  - Hyperhidrosis [Unknown]
